FAERS Safety Report 15473694 (Version 2)
Quarter: 2018Q4

REPORT INFORMATION
  Report Type: Spontaneous
  Country: US (occurrence: US)
  Receive Date: 20181008
  Receipt Date: 20181105
  Transmission Date: 20190205
  Serious: Yes (Other)
  Sender: FDA-Public Use
  Company Number: US-GLAXOSMITHKLINE-US2018180194

PATIENT
  Sex: Male
  Weight: 95 kg

DRUGS (1)
  1. NUCALA [Suspect]
     Active Substance: MEPOLIZUMAB
     Indication: ASTHMA
     Dosage: UNK UNK, SINGLE
     Route: 058
     Dates: start: 20180502, end: 20180502

REACTIONS (5)
  - Tooth infection [Recovered/Resolved]
  - Burkholderia cepacia complex infection [Recovered/Resolved]
  - Sinusitis [Recovered/Resolved]
  - Tooth abscess [Recovered/Resolved]
  - Toothache [Recovered/Resolved]
